FAERS Safety Report 17279106 (Version 3)
Quarter: 2020Q2

REPORT INFORMATION
  Report Type: Spontaneous
  Country: US (occurrence: US)
  Receive Date: 20200116
  Receipt Date: 20200513
  Transmission Date: 20200713
  Serious: No
  Sender: FDA-Public Use
  Company Number: US-LEXICON PHARMACEUTICALS, INC-20-1606-00013

PATIENT
  Age: 50 Year
  Sex: Male

DRUGS (6)
  1. XERMELO [Suspect]
     Active Substance: TELOTRISTAT ETHYL
     Indication: CARCINOID TUMOUR OF THE DUODENUM
     Dates: start: 20191207
  2. SANDOSTATIN [Concomitant]
     Active Substance: OCTREOTIDE ACETATE
     Indication: PRODUCT USED FOR UNKNOWN INDICATION
     Route: 065
  3. XERMELO [Suspect]
     Active Substance: TELOTRISTAT ETHYL
  4. XERMELO [Suspect]
     Active Substance: TELOTRISTAT ETHYL
  5. CHEMOTHERAPY [Concomitant]
     Active Substance: UNSPECIFIED INGREDIENT
     Route: 048
  6. CHEMOTHERAPY [Concomitant]
     Active Substance: UNSPECIFIED INGREDIENT
     Route: 042

REACTIONS (5)
  - Diarrhoea [Not Recovered/Not Resolved]
  - Fatigue [Unknown]
  - Frequent bowel movements [Unknown]
  - Weight decreased [Not Recovered/Not Resolved]
  - Defaecation urgency [Unknown]
